FAERS Safety Report 9399563 (Version 1)
Quarter: 2013Q3

REPORT INFORMATION
  Report Type: Spontaneous
  Country: HK (occurrence: HK)
  Receive Date: 20130715
  Receipt Date: 20130715
  Transmission Date: 20140515
  Serious: Yes (Life-Threatening, Hospitalization, Other)
  Sender: FDA-Public Use
  Company Number: 2013SP005130

PATIENT
  Age: 53 Year
  Sex: Male

DRUGS (28)
  1. AMIODARONE [Suspect]
     Indication: ATRIAL FLUTTER
     Route: 048
  2. AMIODARONE [Suspect]
     Indication: ATRIAL FLUTTER
  3. AMIODARONE [Suspect]
     Indication: ATRIAL FLUTTER
     Route: 042
  4. AMIODARONE [Suspect]
     Indication: ATRIAL FLUTTER
     Route: 042
  5. AMIODARONE [Suspect]
     Indication: ATRIAL FLUTTER
     Route: 042
  6. AMIODARONE [Suspect]
     Indication: ATRIAL FLUTTER
     Route: 048
  7. PIPERACILLIN/TAZOBACTAM [Suspect]
     Indication: PNEUMONIA
  8. CIPROFLOXACIN [Suspect]
     Indication: PRODUCT USED FOR UNKNOWN INDICATION
  9. HEPARIN [Suspect]
     Indication: PULMONARY EMBOLISM
  10. CEFEPIME [Suspect]
     Indication: PNEUMONIA
  11. WARFARIN SODIUM [Suspect]
     Indication: PULMONARY EMBOLISM
  12. WARFARIN SODIUM [Suspect]
     Indication: PULMONARY EMBOLISM
  13. DEXTROPROPOXYPHENE NAPSILATE [Suspect]
     Indication: PAIN
  14. PARACETAMOL [Suspect]
     Indication: PAIN
  15. METHYL SALICYLATE [Suspect]
     Indication: PAIN IN EXTREMITY
     Route: 061
  16. SALBUTAMOL [Concomitant]
  17. IPRATROPIUM [Concomitant]
  18. BUDESONIDE [Concomitant]
  19. HYDROCORTISONE [Concomitant]
  20. PREDNISOLONE [Concomitant]
  21. FUROSEMIDE [Concomitant]
  22. ESOMEPRAZOLE [Concomitant]
  23. FAMOTIDINE [Concomitant]
  24. HALOPERIDOL [Concomitant]
  25. LACTULOSE [Concomitant]
  26. POTASSIUM CHLORIDE [Concomitant]
  27. HEPARIN [Concomitant]
  28. HEPARIN [Concomitant]

REACTIONS (5)
  - Drug interaction [Unknown]
  - Retroperitoneal haematoma [Recovering/Resolving]
  - Muscle haemorrhage [Recovering/Resolving]
  - Haemoglobin decreased [Recovering/Resolving]
  - Coagulopathy [Recovering/Resolving]
